FAERS Safety Report 21173779 (Version 1)
Quarter: 2022Q3

REPORT INFORMATION
  Report Type: Spontaneous
  Country: US (occurrence: US)
  Receive Date: 20220804
  Receipt Date: 20220804
  Transmission Date: 20221027
  Serious: No
  Sender: FDA-Public Use
  Company Number: US-PERRIGO-22US001857

PATIENT
  Age: 69 Year
  Sex: Female
  Weight: 71.655 kg

DRUGS (4)
  1. LORATADINE [Suspect]
     Active Substance: LORATADINE
     Indication: Sneezing
     Dosage: 10 MG, QD, ON AND OFF
     Route: 048
     Dates: start: 2016
  2. LORATADINE [Suspect]
     Active Substance: LORATADINE
     Indication: Rhinorrhoea
     Dosage: 10 MG, TWICE
     Route: 048
     Dates: start: 20220204, end: 20220204
  3. LORATADINE [Suspect]
     Active Substance: LORATADINE
     Indication: Perennial allergy
  4. ROSUVASTATIN [Concomitant]
     Active Substance: ROSUVASTATIN
     Indication: Blood cholesterol increased
     Dosage: 40 MG
     Route: 065
     Dates: start: 202108

REACTIONS (2)
  - Extra dose administered [Recovered/Resolved]
  - Wrong product administered [Recovered/Resolved]

NARRATIVE: CASE EVENT DATE: 20220204
